FAERS Safety Report 13077604 (Version 1)
Quarter: 2016Q4

REPORT INFORMATION
  Report Type: Spontaneous
  Country: US (occurrence: US)
  Receive Date: 20161231
  Receipt Date: 20161231
  Transmission Date: 20170207
  Serious: No
  Sender: FDA-Public Use
  Company Number: US-DRREDDYS-USA/USA/16/0083786

PATIENT
  Sex: Female

DRUGS (2)
  1. HABITROL [Suspect]
     Active Substance: NICOTINE
     Indication: CROHN^S DISEASE
  2. HABITROL [Suspect]
     Active Substance: NICOTINE
     Indication: COLITIS ULCERATIVE
     Route: 061

REACTIONS (3)
  - Treatment noncompliance [Unknown]
  - Product use issue [Unknown]
  - Product adhesion issue [Unknown]
